FAERS Safety Report 7637396-3 (Version None)
Quarter: 2011Q3

REPORT INFORMATION
  Report Type: 
  Country: None (occurrence: None)
  Receive Date: 20110726
  Receipt Date: 20110718
  Transmission Date: 20111222
  Serious: Yes (Disabling, Other)
  Sender: FDA-Public Use
  Company Number: US-PFIZER INC-2011101258

PATIENT
  Sex: Female

DRUGS (1)
  1. CHANTIX [Suspect]
     Indication: SMOKING CESSATION THERAPY
     Dosage: UNK
     Dates: start: 20070901, end: 20071001

REACTIONS (7)
  - ANXIETY [None]
  - DEPRESSION [None]
  - AGGRESSION [None]
  - ANGER [None]
  - SUICIDAL BEHAVIOUR [None]
  - DISTURBANCE IN ATTENTION [None]
  - PANIC ATTACK [None]
